FAERS Safety Report 5509430-8 (Version None)
Quarter: 2007Q4

REPORT INFORMATION
  Report Type: 
  Country: None (occurrence: None)
  Receive Date: 20071106
  Receipt Date: 20071025
  Transmission Date: 20080405
  Serious: Yes (Other)
  Sender: FDA-Public Use
  Company Number: 239207K07USA

PATIENT
  Age: 63 Year
  Sex: Female

DRUGS (5)
  1. REBIF [Suspect]
     Indication: MULTIPLE SCLEROSIS
     Dosage: 22  MCG,3 IN 1 WEEKS, SUBCUTANEOUS;  44 MCG,3 IN 1 WEEKS, SUBCUTANEOUS
     Dates: start: 20060601, end: 20070305
  2. REBIF [Suspect]
     Indication: MULTIPLE SCLEROSIS
     Dosage: 22  MCG,3 IN 1 WEEKS, SUBCUTANEOUS;  44 MCG,3 IN 1 WEEKS, SUBCUTANEOUS
     Dates: start: 20070611
  3. ATACAND HCT (BLOPRESS PLUS) [Concomitant]
  4. GABAPENTIN [Concomitant]
  5. PREVACID [Concomitant]

REACTIONS (5)
  - ATRIAL FIBRILLATION [None]
  - ATRIAL FLUTTER [None]
  - HEART RATE DECREASED [None]
  - LOSS OF CONSCIOUSNESS [None]
  - TACHYCARDIA [None]
